FAERS Safety Report 9699193 (Version 2)
Quarter: 2013Q4

REPORT INFORMATION
  Report Type: Spontaneous
  Country: US (occurrence: US)
  Receive Date: 20131120
  Receipt Date: 20131120
  Transmission Date: 20140711
  Serious: No
  Sender: FDA-Public Use
  Company Number: US-GILEAD-2008-0014928

PATIENT
  Sex: Female
  Weight: 63.05 kg

DRUGS (11)
  1. LETAIRIS [Suspect]
     Indication: PULMONARY ARTERIAL HYPERTENSION
     Route: 048
     Dates: start: 20080108
  2. DEMADEX [Concomitant]
     Dosage: BID
     Route: 048
  3. SINGULAR [Concomitant]
     Route: 048
  4. ALDACTONE [Concomitant]
     Dosage: BID
     Route: 048
  5. COUMADIN [Concomitant]
     Route: 048
  6. LANOXIN [Concomitant]
     Route: 048
  7. FLOLAN [Concomitant]
     Dosage: UD
     Route: 048
  8. SERVENT [Concomitant]
     Route: 055
  9. BENZOTROPINE MES [Concomitant]
     Route: 048
  10. PULMICORT [Concomitant]
     Route: 055
  11. HALOPERIODOL [Concomitant]
     Dosage: BID
     Route: 048

REACTIONS (2)
  - Dizziness [Recovered/Resolved]
  - Nausea [Recovered/Resolved]
